FAERS Safety Report 24695795 (Version 2)
Quarter: 2024Q4

REPORT INFORMATION
  Report Type: Report from Study
  Country: US (occurrence: US)
  Receive Date: 20241204
  Receipt Date: 20241227
  Transmission Date: 20250115
  Serious: Yes (Other)
  Sender: ABBVIE
  Company Number: US-ABBVIE-6029648

PATIENT
  Age: 63 Year
  Sex: Female
  Weight: 104 kg

DRUGS (11)
  1. HUMIRA [Suspect]
     Active Substance: ADALIMUMAB
     Indication: Rheumatoid arthritis
     Dosage: CITRATE FREE,  FORM STRENGTH: 40 MG
     Route: 058
     Dates: start: 20240929
  2. LORAZEPAM [Concomitant]
     Active Substance: LORAZEPAM
     Indication: Hypertension
  3. OMEPRAZOLE [Concomitant]
     Active Substance: OMEPRAZOLE
     Indication: Gastrooesophageal reflux disease
  4. AMOXICILLIN\CLAVULANIC ACID [Concomitant]
     Active Substance: AMOXICILLIN\CLAVULANIC ACID
     Indication: Product used for unknown indication
  5. GABAPENTIN [Concomitant]
     Active Substance: GABAPENTIN
     Indication: Musculoskeletal disorder
  6. ATORVASTATIN [Concomitant]
     Active Substance: ATORVASTATIN
     Indication: Blood cholesterol abnormal
  7. CYCLOBENZAPRINE [Concomitant]
     Active Substance: CYCLOBENZAPRINE
     Indication: Muscle relaxant therapy
  8. NICOTINE [Concomitant]
     Active Substance: NICOTINE
     Indication: Smoking cessation therapy
     Dosage: PATCH
  9. TYLENOL [Concomitant]
     Active Substance: ACETAMINOPHEN
     Indication: Arthritis
  10. LOSARTAN [Concomitant]
     Active Substance: LOSARTAN
     Indication: Blood pressure management
  11. FENOFIBRATE [Concomitant]
     Active Substance: FENOFIBRATE
     Indication: Weight decreased

REACTIONS (6)
  - Loss of consciousness [Recovering/Resolving]
  - Road traffic accident [Recovering/Resolving]
  - Rash [Recovering/Resolving]
  - Back disorder [Unknown]
  - Back pain [Unknown]
  - Contusion [Unknown]

NARRATIVE: CASE EVENT DATE: 20240101
